FAERS Safety Report 9938100 (Version 2)
Quarter: 2015Q4

REPORT INFORMATION
  Report Type: Report from Study
  Country: US (occurrence: US)
  Receive Date: 20140303
  Receipt Date: 20151202
  Transmission Date: 20160305
  Serious: Yes (Other)
  Sender: FDA-Public Use
  Company Number: US-ROCHE-1348135

PATIENT
  Sex: Female

DRUGS (19)
  1. LUCENTIS [Suspect]
     Active Substance: RANIBIZUMAB
     Indication: DIABETIC RETINOPATHY
     Route: 050
  2. LUCENTIS [Suspect]
     Active Substance: RANIBIZUMAB
     Indication: DIABETIC RETINAL OEDEMA
  3. ACETYLSALICYLIC ACID [Concomitant]
     Active Substance: ASPIRIN
     Dosage: 81
     Route: 065
  4. AVASTIN [Suspect]
     Active Substance: BEVACIZUMAB
     Indication: DIABETIC RETINOPATHY
  5. INSULIN 70/30 [Concomitant]
     Active Substance: INSULIN HUMAN
  6. SIMVASTATIN. [Concomitant]
     Active Substance: SIMVASTATIN
  7. SENSIPAR [Concomitant]
     Active Substance: CINACALCET HYDROCHLORIDE
  8. TRIAMCINOLONE [Concomitant]
     Active Substance: TRIAMCINOLONE
     Dosage: 40 MG/CC
     Route: 050
  9. AVASTIN [Suspect]
     Active Substance: BEVACIZUMAB
     Indication: DIABETIC RETINAL OEDEMA
     Route: 065
  10. BETADINE [Concomitant]
     Active Substance: POVIDONE-IODINE
  11. FOSRENOL [Concomitant]
     Active Substance: LANTHANUM CARBONATE
  12. NORVASC [Concomitant]
     Active Substance: AMLODIPINE BESYLATE
  13. CELEXA (UNITED STATES) [Concomitant]
  14. ENALAPRIL MALEATE. [Concomitant]
     Active Substance: ENALAPRIL MALEATE
     Route: 065
  15. LIDOCAINE. [Concomitant]
     Active Substance: LIDOCAINE
  16. AMITRIPTYLINE [Concomitant]
     Active Substance: AMITRIPTYLINE
  17. POVIDONE-IODINE. [Concomitant]
     Active Substance: POVIDONE-IODINE
  18. PROPARACAINE [Concomitant]
     Active Substance: PROPARACAINE
     Route: 065
  19. TROPICAMIDE. [Concomitant]
     Active Substance: TROPICAMIDE
     Route: 065

REACTIONS (5)
  - Off label use [Unknown]
  - Macular fibrosis [Unknown]
  - Macular oedema [Unknown]
  - Intraocular lens implant [Unknown]
  - Posterior capsule opacification [Unknown]
